FAERS Safety Report 18769249 (Version 2)
Quarter: 2021Q1

REPORT INFORMATION
  Report Type: Spontaneous
  Country: TW (occurrence: TW)
  Receive Date: 20210121
  Receipt Date: 20210209
  Transmission Date: 20210419
  Serious: Yes (Hospitalization, Disabling, Other)
  Sender: FDA-Public Use
  Company Number: TW-INCYTE CORPORATION-2021IN000476

PATIENT

DRUGS (5)
  1. SANDIMMUN [Suspect]
     Active Substance: CYCLOSPORINE
     Indication: GRAFT VERSUS HOST DISEASE IN LUNG
     Dosage: 100 MG, BID (Q7AM/A7PM)
     Route: 048
     Dates: start: 20190418, end: 20190708
  2. PREDNISOLONE. [Suspect]
     Active Substance: PREDNISOLONE
     Indication: GRAFT VERSUS HOST DISEASE IN LUNG
     Dosage: 10 MG, BID
     Route: 048
     Dates: start: 20170126, end: 20170824
  3. PROGRAF [Concomitant]
     Active Substance: TACROLIMUS
     Indication: GRAFT VERSUS HOST DISEASE IN LUNG
     Dosage: 1 MG, QD (Q7AM, Q7PM)
     Route: 048
     Dates: start: 20190715
  4. JAKAVI [Suspect]
     Active Substance: RUXOLITINIB
     Indication: GRAFT VERSUS HOST DISEASE IN LUNG
     Dosage: 5 MG, BID (Q7AM/Q7PM)
     Route: 048
     Dates: start: 20190927
  5. PREDNISOLONE. [Suspect]
     Active Substance: PREDNISOLONE
     Dosage: 10 MG, BID
     Route: 048
     Dates: start: 20190325, end: 20200124

REACTIONS (9)
  - Lung disorder [Not Recovered/Not Resolved]
  - Oxygen saturation decreased [Not Recovered/Not Resolved]
  - Product use in unapproved indication [Unknown]
  - Major depression [Not Recovered/Not Resolved]
  - Osteonecrosis [Not Recovered/Not Resolved]
  - Respiratory distress [Not Recovered/Not Resolved]
  - Pneumothorax [Recovered/Resolved]
  - Interstitial lung disease [Not Recovered/Not Resolved]
  - Aspergillus infection [Recovered/Resolved]

NARRATIVE: CASE EVENT DATE: 20170126
